FAERS Safety Report 8446076 (Version 3)
Quarter: 2018Q2

REPORT INFORMATION
  Report Type: Spontaneous
  Country: US (occurrence: US)
  Receive Date: 20120307
  Receipt Date: 20180619
  Transmission Date: 20180711
  Serious: No
  Sender: FDA-Public Use
  Company Number: US-ASTRAZENECA-2011SE45985

PATIENT
  Age: 49 Year
  Sex: Male

DRUGS (2)
  1. ZOMIG ZMT [Suspect]
     Active Substance: ZOLMITRIPTAN
     Dosage: 5.0MG UNKNOWN
     Route: 048
  2. ZOMIG ZMT [Suspect]
     Active Substance: ZOLMITRIPTAN
     Route: 048

REACTIONS (7)
  - Pruritus [Unknown]
  - Throat irritation [Unknown]
  - Migraine [Unknown]
  - Incorrect route of drug administration [Unknown]
  - Intercepted drug prescribing error [Unknown]
  - Drug dose omission [Unknown]
  - Intentional product misuse [Unknown]
